FAERS Safety Report 5720564-5 (Version None)
Quarter: 2008Q2

REPORT INFORMATION
  Report Type: 
  Country: None (occurrence: None)
  Receive Date: 20080428
  Receipt Date: 20080428
  Transmission Date: 20081010
  Serious: Yes (Other)
  Sender: FDA-Public Use
  Company Number: None

PATIENT
  Age: 28 Year
  Sex: Male
  Weight: 56.246 kg

DRUGS (3)
  1. D-AMPHETAMINE SALT COMBO 20MG COREPHARMA [Suspect]
     Indication: ATTENTION DEFICIT/HYPERACTIVITY DISORDER
     Dosage: 20MG TWICE DAILY PO
     Route: 048
     Dates: start: 20080123, end: 20080222
  2. D-AMPHETAMINE SALT COMBO 20MG COREPHARMA [Suspect]
     Indication: ATTENTION DEFICIT/HYPERACTIVITY DISORDER
     Dosage: 20MG TWICE DAILY PO
     Route: 048
     Dates: start: 20080426, end: 20080427
  3. BUPROPION HCL [Concomitant]

REACTIONS (10)
  - ANXIETY [None]
  - DYSPNOEA [None]
  - FEAR [None]
  - FEELING JITTERY [None]
  - HEADACHE [None]
  - HEART RATE INCREASED [None]
  - NO THERAPEUTIC RESPONSE [None]
  - PALPITATIONS [None]
  - PHARMACEUTICAL PRODUCT COMPLAINT [None]
  - THERAPEUTIC RESPONSE DECREASED [None]
